FAERS Safety Report 4997756-6 (Version None)
Quarter: 2006Q2

REPORT INFORMATION
  Report Type: 
  Country: None (occurrence: None)
  Receive Date: 20060505
  Receipt Date: 20060419
  Transmission Date: 20061013
  Serious: Yes (Hospitalization)
  Sender: FDA-Public Use
  Company Number: US177155

PATIENT
  Age: 23 Year
  Sex: Male

DRUGS (4)
  1. NEULASTA [Suspect]
     Indication: CHEMOTHERAPY
  2. DOXORUBICIN HCL [Concomitant]
  3. BLEOMYCIN SULFATE [Concomitant]
  4. DACARBAZINE [Concomitant]

REACTIONS (7)
  - NECROTISING FASCIITIS [None]
  - OEDEMA PERIPHERAL [None]
  - PAIN IN EXTREMITY [None]
  - PYODERMA GANGRENOSUM [None]
  - PYREXIA [None]
  - SKIN HAEMORRHAGE [None]
  - WHITE BLOOD CELL COUNT INCREASED [None]
